FAERS Safety Report 11637963 (Version 2)
Quarter: 2015Q4

REPORT INFORMATION
  Report Type: Spontaneous
  Country: FR (occurrence: FR)
  Receive Date: 20151016
  Receipt Date: 20151113
  Transmission Date: 20160304
  Serious: Yes (Disabling, Other)
  Sender: FDA-Public Use
  Company Number: FR-NOVOPROD-466865

PATIENT
  Age: 9 Year
  Sex: Female
  Weight: 33 kg

DRUGS (2)
  1. NORDITROPIN [Suspect]
     Active Substance: SOMATROPIN
     Indication: TURNER^S SYNDROME
     Dosage: 0.044 MG/KG
     Route: 058
     Dates: start: 20150215
  2. NORDITROPIN [Suspect]
     Active Substance: SOMATROPIN
     Dosage: 0.022 MG/KG
     Route: 058
     Dates: start: 20150407, end: 20150415

REACTIONS (3)
  - Pain in extremity [Recovered/Resolved]
  - Papilloedema [Recovered/Resolved with Sequelae]
  - Intracranial pressure increased [Unknown]

NARRATIVE: CASE EVENT DATE: 20150407
